FAERS Safety Report 6167718-4 (Version None)
Quarter: 2009Q2

REPORT INFORMATION
  Report Type: 
  Country: None (occurrence: None)
  Receive Date: 20090424
  Receipt Date: 20090424
  Transmission Date: 20091009
  Serious: Yes (Hospitalization)
  Sender: FDA-Public Use
  Company Number: US-ABBOTT-08P-163-0480463-00

PATIENT
  Sex: Male
  Weight: 104.42 kg

DRUGS (5)
  1. LUPRON DEPOT [Suspect]
     Indication: PROSTATE CANCER
     Route: 030
     Dates: start: 20060801, end: 20080501
  2. LEVOXYL [Concomitant]
     Indication: HYPOTHYROIDISM
     Route: 048
  3. CYMBALTA [Concomitant]
     Indication: DEPRESSION
     Route: 048
  4. ONDANSETRON [Concomitant]
     Indication: NAUSEA
     Route: 048
  5. ATENOLOL [Concomitant]
     Indication: HYPERTENSION
     Route: 048

REACTIONS (13)
  - CONSTIPATION [None]
  - DIARRHOEA [None]
  - FATIGUE [None]
  - HOT FLUSH [None]
  - HUNGER [None]
  - HYPERHIDROSIS [None]
  - JOINT SWELLING [None]
  - NAUSEA [None]
  - OEDEMA PERIPHERAL [None]
  - PROCTALGIA [None]
  - PROSTATE CANCER [None]
  - SWELLING FACE [None]
  - WEIGHT INCREASED [None]
